FAERS Safety Report 5203979-3 (Version None)
Quarter: 2007Q1

REPORT INFORMATION
  Report Type: 
  Country: None (occurrence: None)
  Receive Date: 20070110
  Receipt Date: 20061230
  Transmission Date: 20070707
  Serious: Yes (Other)
  Sender: FDA-Public Use
  Company Number: CN-PFIZER INC-2006152184

PATIENT
  Age: 70 Year
  Sex: Male

DRUGS (1)
  1. SULPERAZON [Suspect]
     Indication: ASTHMA
     Route: 030
     Dates: start: 20061201, end: 20061201

REACTIONS (1)
  - ASTHMA [None]
